FAERS Safety Report 4452390-1 (Version None)
Quarter: 2004Q3

REPORT INFORMATION
  Report Type: 
  Country: None (occurrence: None)
  Receive Date: 20040917
  Receipt Date: 20040907
  Transmission Date: 20050211
  Serious: Yes (Death, Other)
  Sender: FDA-Public Use
  Company Number: PHEH2004US09700

PATIENT
  Age: 74 Year
  Sex: Male

DRUGS (20)
  1. AREDIA [Suspect]
     Indication: HYPERCALCAEMIA OF MALIGNANCY
     Dosage: 90 MG, QMO
     Route: 042
     Dates: start: 20010601, end: 20040730
  2. COUMADIN [Concomitant]
  3. T-GEL [Concomitant]
  4. PROSCAR [Concomitant]
  5. AVODART [Concomitant]
  6. RAPAMUNE [Concomitant]
  7. GM-CSF [Concomitant]
  8. INTRON A ^ESSEX CHEMIE^ [Concomitant]
  9. CELEBREX [Concomitant]
  10. CALCITRIOL [Concomitant]
  11. LIPITOR [Concomitant]
  12. ATENOLOL [Concomitant]
  13. LASIX                                   /SCH/ [Concomitant]
  14. DECADRON [Concomitant]
  15. NORCO [Concomitant]
  16. ANDROGEL [Concomitant]
  17. THALIDOMIDE [Concomitant]
  18. TAXOTERE [Concomitant]
  19. EMCYT [Concomitant]
  20. DECADRON [Concomitant]

REACTIONS (4)
  - BONE DEBRIDEMENT [None]
  - OSTEONECROSIS [None]
  - RENAL FAILURE [None]
  - TOOTH EXTRACTION [None]
